FAERS Safety Report 9014836 (Version 2)
Quarter: 2013Q1

REPORT INFORMATION
  Report Type: Spontaneous
  Country: US (occurrence: US)
  Receive Date: 20130116
  Receipt Date: 20130128
  Transmission Date: 20140127
  Serious: Yes (Hospitalization)
  Sender: FDA-Public Use
  Company Number: US-BIOGENIDEC-2013BI003666

PATIENT
  Age: 46 Year
  Sex: Male

DRUGS (7)
  1. TYSABRI [Suspect]
     Indication: MULTIPLE SCLEROSIS
     Route: 042
     Dates: start: 20120724
  2. ADDERALL [Concomitant]
     Route: 048
  3. LOPERAMIDE [Concomitant]
     Route: 048
  4. MULTIVITAMINS [Concomitant]
  5. NYSTATIN [Concomitant]
  6. OXYBUTYNIN [Concomitant]
  7. PAROXETINE [Concomitant]
     Route: 048

REACTIONS (8)
  - Urinary tract infection enterococcal [Unknown]
  - Blood potassium decreased [Unknown]
  - Urinary retention [Unknown]
  - Deep vein thrombosis [Recovered/Resolved]
  - Fall [Recovered/Resolved]
  - Loss of control of legs [Not Recovered/Not Resolved]
  - Blindness [Not Recovered/Not Resolved]
  - Fatigue [Not Recovered/Not Resolved]
